FAERS Safety Report 10090248 (Version 1)
Quarter: 2014Q2

REPORT INFORMATION
  Report Type: Spontaneous
  Country: US (occurrence: US)
  Receive Date: 20140421
  Receipt Date: 20140421
  Transmission Date: 20141212
  Serious: Yes (Other)
  Sender: FDA-Public Use
  Company Number: US-TEVA-476828USA

PATIENT
  Age: 34 Year
  Sex: Female
  Weight: 57.2 kg

DRUGS (2)
  1. PARAGARD 380A [Suspect]
     Indication: CONTRACEPTION
     Route: 015
     Dates: start: 20140211, end: 20140402
  2. IRON SUPPLEMENTS [Concomitant]
     Indication: ANAEMIA

REACTIONS (2)
  - Device dislocation [Recovered/Resolved]
  - Vaginal haemorrhage [Recovered/Resolved]
